FAERS Safety Report 13515085 (Version 1)
Quarter: 2017Q2

REPORT INFORMATION
  Report Type: Spontaneous
  Country: US (occurrence: US)
  Receive Date: 20170504
  Receipt Date: 20170504
  Transmission Date: 20170830
  Serious: No
  Sender: FDA-Public Use
  Company Number: US-GLAXOSMITHKLINE-US2017064789

PATIENT
  Sex: Female

DRUGS (10)
  1. QVAR [Concomitant]
     Active Substance: BECLOMETHASONE DIPROPIONATE
  2. SEREVENT DISKUS [Suspect]
     Active Substance: SALMETEROL XINAFOATE
     Indication: CHRONIC OBSTRUCTIVE PULMONARY DISEASE
     Dosage: 1 PUFF(S), BID
     Route: 055
     Dates: start: 201611
  3. MELOXICAM. [Concomitant]
     Active Substance: MELOXICAM
  4. ADVAIR DISKUS [Suspect]
     Active Substance: FLUTICASONE PROPIONATE\SALMETEROL XINAFOATE
     Indication: CHRONIC OBSTRUCTIVE PULMONARY DISEASE
     Dosage: 1 PUFF(S), BID
     Route: 055
     Dates: end: 201611
  5. ARNICA [Concomitant]
     Active Substance: ARNICA MONTANA FLOWER
  6. FISH OIL [Concomitant]
     Active Substance: FISH OIL
  7. VITAMIN C [Concomitant]
     Active Substance: ASCORBIC ACID
  8. COQ10 [Concomitant]
     Active Substance: UBIDECARENONE
  9. LISINOPRIL. [Concomitant]
     Active Substance: LISINOPRIL
  10. CALCIUM [Concomitant]
     Active Substance: CALCIUM

REACTIONS (2)
  - Contusion [Not Recovered/Not Resolved]
  - Pain [Not Recovered/Not Resolved]
